FAERS Safety Report 19591855 (Version 1)
Quarter: 2021Q3

REPORT INFORMATION
  Report Type: Report from Study
  Country: FR (occurrence: FR)
  Receive Date: 20210721
  Receipt Date: 20210721
  Transmission Date: 20211014
  Serious: Yes (Life-Threatening)
  Sender: FDA-Public Use
  Company Number: FR-ROCHE-2865750

PATIENT
  Age: 61 Year
  Sex: Male

DRUGS (14)
  1. PARACETAMOL [Concomitant]
     Active Substance: ACETAMINOPHEN
  2. BIKTARVY [Concomitant]
     Active Substance: BICTEGRAVIR SODIUM\EMTRICITABINE\TENOFOVIR ALAFENAMIDE FUMARATE
  3. MIDAZOLAM. [Concomitant]
     Active Substance: MIDAZOLAM
  4. TOCILIZUMAB. [Suspect]
     Active Substance: TOCILIZUMAB
     Dosage: 8MG/KG
     Route: 042
     Dates: start: 20200408, end: 20200408
  5. ATRACURIUM [Concomitant]
     Active Substance: ATRACURIUM
  6. PROPOFOL. [Concomitant]
     Active Substance: PROPOFOL
  7. ETOMIDATE. [Concomitant]
     Active Substance: ETOMIDATE
  8. PANTOPRAZOLE [Concomitant]
     Active Substance: PANTOPRAZOLE
  9. ENOXAPARIN [Concomitant]
     Active Substance: ENOXAPARIN
  10. TOCILIZUMAB. [Suspect]
     Active Substance: TOCILIZUMAB
     Indication: CORONAVIRUS INFECTION
     Dosage: 8MG/KG
     Route: 042
     Dates: start: 20200406, end: 20200406
  11. NOREPINEPHRINE. [Concomitant]
     Active Substance: NOREPINEPHRINE
  12. INSULIN [Concomitant]
     Active Substance: INSULIN NOS
  13. SUFENTANIL [Concomitant]
     Active Substance: SUFENTANIL
  14. SUXAMETHONIUM [Concomitant]
     Active Substance: SUCCINYLCHOLINE

REACTIONS (1)
  - Renal failure [Recovered/Resolved]

NARRATIVE: CASE EVENT DATE: 20200414
